FAERS Safety Report 20577831 (Version 2)
Quarter: 2022Q1

REPORT INFORMATION
  Report Type: Report from Study
  Country: CA (occurrence: CA)
  Receive Date: 20220310
  Receipt Date: 20220325
  Transmission Date: 20220423
  Serious: No
  Sender: FDA-Public Use
  Company Number: CA-KOREA IPSEN Pharma-2022-06480

PATIENT
  Sex: Female

DRUGS (5)
  1. LANREOTIDE ACETATE [Suspect]
     Active Substance: LANREOTIDE ACETATE
     Indication: Neuroendocrine tumour
     Dosage: 120 MG EVERY 4 WEEKS
     Route: 058
     Dates: start: 20220222
  2. ESTROGENS [Concomitant]
     Active Substance: ESTROGENS
  3. CLONAZEPAM [Concomitant]
     Active Substance: CLONAZEPAM
  4. AMITRIPTYLINE [Concomitant]
     Active Substance: AMITRIPTYLINE
  5. OXYCODONE [Concomitant]
     Active Substance: OXYCODONE

REACTIONS (1)
  - Cardiac disorder [Unknown]
